FAERS Safety Report 4957133-0 (Version None)
Quarter: 2006Q1

REPORT INFORMATION
  Report Type: 
  Country: None (occurrence: None)
  Receive Date: 20060329
  Receipt Date: 20051028
  Transmission Date: 20060701
  Serious: Yes (Hospitalization, Disabling, Other)
  Sender: FDA-Public Use
  Company Number: US-MERCK-0510USA09953

PATIENT
  Age: 62 Year
  Sex: Male
  Weight: 125 kg

DRUGS (13)
  1. VIOXX [Suspect]
     Indication: ARTHRITIS
     Route: 048
     Dates: start: 20000101, end: 20030101
  2. COZAAR [Concomitant]
     Indication: HYPERTENSION
     Route: 048
     Dates: start: 19990601
  3. NORVASC [Concomitant]
     Indication: HYPERTENSION
     Route: 065
     Dates: start: 19980801
  4. NORVASC [Concomitant]
     Indication: CARDIAC DISORDER
     Route: 065
     Dates: start: 19980801
  5. ASPIRIN [Concomitant]
     Indication: CARDIAC DISORDER
     Route: 065
     Dates: start: 20010101, end: 20040101
  6. TOPROL-XL [Concomitant]
     Indication: HYPERTENSION
     Route: 065
     Dates: start: 19980101
  7. TOPROL-XL [Concomitant]
     Indication: CARDIAC DISORDER
     Route: 065
     Dates: start: 19980101
  8. LIPITOR [Concomitant]
     Indication: BLOOD CHOLESTEROL INCREASED
     Route: 065
     Dates: start: 20010101
  9. IMDUR [Concomitant]
     Indication: CARDIAC DISORDER
     Route: 065
     Dates: start: 20010101
  10. TYLENOL (CAPLET) [Concomitant]
     Indication: PAIN
     Route: 065
  11. SYNTHROID [Concomitant]
     Indication: THYROID DISORDER
     Route: 065
  12. GLUCOPHAGE [Concomitant]
     Indication: DIABETES MELLITUS
     Route: 065
  13. ALLOPURINOL [Concomitant]
     Indication: NEPHROLITHIASIS
     Route: 065

REACTIONS (24)
  - ABNORMAL FAECES [None]
  - AMNESIA [None]
  - ARTERIOSCLEROSIS [None]
  - BLOOD CHOLESTEROL INCREASED [None]
  - CARDIAC DISORDER [None]
  - CARDIOVASCULAR DISORDER [None]
  - CEREBRAL INFARCTION [None]
  - CEREBROVASCULAR ACCIDENT [None]
  - CHRONIC FATIGUE SYNDROME [None]
  - EMOTIONAL DISTRESS [None]
  - EYE MOVEMENT DISORDER [None]
  - GLIOSIS [None]
  - HEADACHE [None]
  - HEPATIC STEATOSIS [None]
  - HYPERTENSION [None]
  - HYPOGLYCAEMIA [None]
  - MYOCARDIAL INFARCTION [None]
  - NEPHROLITHIASIS [None]
  - OEDEMA PERIPHERAL [None]
  - SKIN ULCER [None]
  - SLEEP APNOEA SYNDROME [None]
  - SLEEP DISORDER [None]
  - TRANSIENT ISCHAEMIC ATTACK [None]
  - VENOUS INSUFFICIENCY [None]
